FAERS Safety Report 17641776 (Version 2)
Quarter: 2020Q2

REPORT INFORMATION
  Report Type: Report from Study
  Country: US (occurrence: US)
  Receive Date: 20200407
  Receipt Date: 20200508
  Transmission Date: 20200713
  Serious: Yes (Hospitalization)
  Sender: FDA-Public Use
  Company Number: US-ACTELION-A-NJ2019-193395

PATIENT
  Age: 56 Year
  Sex: Female

DRUGS (2)
  1. FLOLAN [Concomitant]
     Active Substance: EPOPROSTENOL SODIUM
     Dosage: UNK
     Dates: end: 202003
  2. OPSUMIT [Suspect]
     Active Substance: MACITENTAN
     Indication: PULMONARY ARTERIAL HYPERTENSION
     Dosage: 10 MG, QD
     Route: 048
     Dates: start: 20181027

REACTIONS (10)
  - Rhinovirus infection [Recovered/Resolved]
  - Chest pain [Recovered/Resolved]
  - Bacteraemia [Recovered/Resolved]
  - Dyspnoea [Recovered/Resolved]
  - Cough [Recovered/Resolved]
  - Oedema peripheral [Recovered/Resolved]
  - Human rhinovirus test positive [Recovered/Resolved]
  - Device related sepsis [Unknown]
  - Catheter management [Recovered/Resolved]
  - Staphylococcal sepsis [Unknown]

NARRATIVE: CASE EVENT DATE: 20190606
